FAERS Safety Report 20503027 (Version 8)
Quarter: 2022Q2

REPORT INFORMATION
  Report Type: Report from Study
  Country: FR (occurrence: None)
  Receive Date: 20220222
  Receipt Date: 20220530
  Transmission Date: 20220720
  Serious: Yes (Death)
  Sender: FDA-Public Use
  Company Number: FR-ROCHE-3030179

PATIENT
  Age: 50 Year
  Sex: Male
  Weight: 84 kg

DRUGS (23)
  1. OCRELIZUMAB [Suspect]
     Active Substance: OCRELIZUMAB
     Indication: Primary progressive multiple sclerosis
     Dosage: TWO INFUSIONS OF OCRELIZUMAB SEPARATED BY 14 DAYS IN EACH TREATMENT CYCLE OF 24 WEEKS (AS PER PROTOC
     Route: 042
     Dates: start: 20121210, end: 20121210
  2. OCRELIZUMAB [Suspect]
     Active Substance: OCRELIZUMAB
     Indication: Primary progressive multiple sclerosis
     Dosage: TWO INFUSIONS OF OCRELIZUMAB SEPARATED BY 14 DAYS IN EACH TREATMENT CYCLE OF 24 WEEKS (AS PER PROTOC
     Route: 042
     Dates: start: 20160215, end: 20160215
  3. DOLIPRANE [Concomitant]
     Active Substance: ACETAMINOPHEN
     Dosage: ON 01/MAR/2016, 02/SEP/2021, 05/JUN/2018, 06/JUN/2013, 07/SEP/2015, 10/DEC/2012, 14/APRIL/2014, 14/O
     Dates: start: 20130103
  4. METHYLPREDNISOLONE [Concomitant]
     Active Substance: METHYLPREDNISOLONE
     Dosage: ON 19/OCT/2020, 01/MAR/2016, 02/SEP/2021, 05/JUN/2018, 06/JUN/2013, 07/SEP/2015, 10/DEC/2012, 14/APR
     Dates: start: 20130103
  5. POLARAMINE [Concomitant]
     Active Substance: DEXCHLORPHENIRAMINE MALEATE
     Indication: Infusion related reaction
     Dosage: SUBSEQUENT DOSE ON , 02/SEP/2021
     Dates: start: 20210329, end: 20210329
  6. POLARAMINE [Concomitant]
     Active Substance: DEXCHLORPHENIRAMINE MALEATE
     Dates: start: 20201019, end: 20201019
  7. XYZAL [Concomitant]
     Active Substance: LEVOCETIRIZINE DIHYDROCHLORIDE
     Dosage: ON 14/APRIL/2014, 01/MAR/2016, 05/JUN/2018, 06/JUN/2013, 07/SEP/2015, 14/OCT/2014, 15/FEB/2016, 15/N
     Dates: start: 20121210
  8. EBASTINE [Concomitant]
     Active Substance: EBASTINE
     Dates: start: 20210424, end: 20210725
  9. BETADINE (FRANCE) [Concomitant]
     Dates: start: 20190402, end: 20190422
  10. BIOTINE (FRANCE) [Concomitant]
     Indication: Progressive multiple sclerosis
     Dates: start: 20170112, end: 20170701
  11. ACETAMINOPHEN\CODEINE PHOSPHATE [Concomitant]
     Active Substance: ACETAMINOPHEN\CODEINE PHOSPHATE
     Indication: Tooth abscess
     Dates: start: 20170111, end: 20170118
  12. ACETAMINOPHEN\CODEINE PHOSPHATE [Concomitant]
     Active Substance: ACETAMINOPHEN\CODEINE PHOSPHATE
     Indication: Tooth abscess
     Dates: start: 20170111, end: 20170118
  13. COMIRNATY [Concomitant]
     Active Substance: TOZINAMERAN
     Indication: COVID-19 immunisation
     Dates: start: 20210905, end: 20210905
  14. COMIRNATY [Concomitant]
     Active Substance: TOZINAMERAN
     Dates: start: 20211015, end: 20211015
  15. DESLORATADINE [Concomitant]
     Active Substance: DESLORATADINE
  16. DALFAMPRIDINE [Concomitant]
     Active Substance: DALFAMPRIDINE
     Dates: start: 201510, end: 201603
  17. DALFAMPRIDINE [Concomitant]
     Active Substance: DALFAMPRIDINE
     Dates: start: 20150309, end: 20150630
  18. DESONIDE [Concomitant]
     Active Substance: DESONIDE
     Dates: start: 20181215, end: 20181215
  19. MYLEUGYNE [Concomitant]
  20. ACETAMINOPHEN [Concomitant]
     Active Substance: ACETAMINOPHEN
     Indication: Nasopharyngitis
     Dates: start: 20190301, end: 20190331
  21. PRISTINAMYCIN [Concomitant]
     Active Substance: PRISTINAMYCIN
     Indication: Anal abscess
     Dates: start: 20130201, end: 20130207
  22. SPIRAMYCIN [Concomitant]
     Active Substance: SPIRAMYCIN
     Indication: Tooth abscess
     Dates: start: 20170111, end: 20170118
  23. SARS-COV-2 VACCINE [Concomitant]

REACTIONS (1)
  - COVID-19 pneumonia [Fatal]

NARRATIVE: CASE EVENT DATE: 20211207
